FAERS Safety Report 5080971-3 (Version None)
Quarter: 2006Q3

REPORT INFORMATION
  Report Type: 
  Country: None (occurrence: None)
  Receive Date: 20060720
  Receipt Date: 20060114
  Transmission Date: 20061208
  Serious: Yes (Other)
  Sender: FDA-Public Use
  Company Number: 2005162180

PATIENT
  Age: 73 Year
  Sex: Female
  Weight: 46.7205 kg

DRUGS (3)
  1. CELEBREX [Suspect]
     Indication: ARTHRITIS
     Dosage: 200 MG (200 MG, ONE TIME ONLY), ORAL
     Route: 048
     Dates: start: 20051101, end: 20051101
  2. AMILORIDE (AMILORIDE) [Concomitant]
  3. ZETIA [Concomitant]

REACTIONS (3)
  - DYSPNOEA [None]
  - MUSCULOSKELETAL STIFFNESS [None]
  - PAINFUL RESPIRATION [None]
